FAERS Safety Report 19240136 (Version 1)
Quarter: 2021Q2

REPORT INFORMATION
  Report Type: Other
  Country: TR (occurrence: TR)
  Receive Date: 20210510
  Receipt Date: 20210510
  Transmission Date: 20210717
  Serious: Yes (Death, Other)
  Sender: FDA-Public Use
  Company Number: TR-ROCHE-2825398

PATIENT

DRUGS (23)
  1. MYCOPHENOLATE MOFETIL. [Suspect]
     Active Substance: MYCOPHENOLATE MOFETIL
     Indication: PEMPHIGUS
  2. AZATHIOPRINE. [Suspect]
     Active Substance: AZATHIOPRINE
     Indication: PEMPHIGOID
  3. AZATHIOPRINE. [Suspect]
     Active Substance: AZATHIOPRINE
     Indication: PEMPHIGUS
  4. AZATHIOPRINE. [Suspect]
     Active Substance: AZATHIOPRINE
     Indication: PEMPHIGUS
  5. METHOTREXATE. [Suspect]
     Active Substance: METHOTREXATE
     Indication: PEMPHIGUS
  6. DAPSONE. [Suspect]
     Active Substance: DAPSONE
     Indication: ACQUIRED EPIDERMOLYSIS BULLOSA
  7. AZATHIOPRINE. [Suspect]
     Active Substance: AZATHIOPRINE
     Indication: PEMPHIGUS
  8. COLCHICINE. [Suspect]
     Active Substance: COLCHICINE
     Indication: ACQUIRED EPIDERMOLYSIS BULLOSA
     Route: 065
  9. RITUXIMAB. [Suspect]
     Active Substance: RITUXIMAB
     Indication: LINEAR IGA DISEASE
  10. AZATHIOPRINE. [Suspect]
     Active Substance: AZATHIOPRINE
     Indication: LINEAR IGA DISEASE
  11. RITUXIMAB. [Suspect]
     Active Substance: RITUXIMAB
     Indication: PEMPHIGUS
     Dosage: 2 WEEKS APART.
     Route: 041
  12. AZATHIOPRINE. [Suspect]
     Active Substance: AZATHIOPRINE
     Indication: PEMPHIGOID
  13. MYCOPHENOLATE SODIUM [Suspect]
     Active Substance: MYCOPHENOLATE SODIUM
     Indication: ACQUIRED EPIDERMOLYSIS BULLOSA
     Route: 065
  14. MYCOPHENOLATE SODIUM [Suspect]
     Active Substance: MYCOPHENOLATE SODIUM
     Indication: PEMPHIGUS
  15. DAPSONE. [Suspect]
     Active Substance: DAPSONE
     Indication: ACQUIRED EPIDERMOLYSIS BULLOSA
     Route: 065
  16. METHOTREXATE. [Suspect]
     Active Substance: METHOTREXATE
     Indication: ACQUIRED EPIDERMOLYSIS BULLOSA
     Route: 065
  17. METHOTREXATE. [Suspect]
     Active Substance: METHOTREXATE
     Indication: PEMPHIGUS
  18. DAPSONE. [Suspect]
     Active Substance: DAPSONE
     Indication: PEMPHIGUS
  19. RITUXIMAB. [Suspect]
     Active Substance: RITUXIMAB
     Indication: PEMPHIGUS
  20. MYCOPHENOLATE MOFETIL. [Suspect]
     Active Substance: MYCOPHENOLATE MOFETIL
     Indication: ACQUIRED EPIDERMOLYSIS BULLOSA
     Route: 065
  21. AZATHIOPRINE. [Suspect]
     Active Substance: AZATHIOPRINE
     Indication: ACQUIRED EPIDERMOLYSIS BULLOSA
     Route: 065
  22. DAPSONE. [Suspect]
     Active Substance: DAPSONE
     Indication: LINEAR IGA DISEASE
  23. CYCLOSPORINE. [Suspect]
     Active Substance: CYCLOSPORINE
     Indication: ACQUIRED EPIDERMOLYSIS BULLOSA
     Route: 065

REACTIONS (16)
  - Pancytopenia [Unknown]
  - Oral candidiasis [Unknown]
  - Depression [Unknown]
  - Neuropathy peripheral [Unknown]
  - Hepatotoxicity [Unknown]
  - Cataract [Unknown]
  - Hypertension [Unknown]
  - Pneumonia [Unknown]
  - Deep vein thrombosis [Unknown]
  - Glaucoma [Unknown]
  - Osteoporosis [Unknown]
  - Acne [Unknown]
  - Pneumonia [Fatal]
  - Diabetes mellitus [Unknown]
  - Osteonecrosis [Unknown]
  - Myopathy [Unknown]
